FAERS Safety Report 13065011 (Version 1)
Quarter: 2016Q4

REPORT INFORMATION
  Report Type: Spontaneous
  Country: IN (occurrence: IN)
  Receive Date: 20161227
  Receipt Date: 20161227
  Transmission Date: 20170207
  Serious: Yes (Death)
  Sender: FDA-Public Use
  Company Number: IN-ASTELLAS-2016US050484

PATIENT
  Sex: Male

DRUGS (1)
  1. XTANDI [Suspect]
     Active Substance: ENZALUTAMIDE
     Indication: PROSTATE CANCER METASTATIC
     Dosage: 160 (4 X40) MG, ONCE DAILY
     Route: 048
     Dates: start: 2016, end: 20161010

REACTIONS (1)
  - Death [Fatal]

NARRATIVE: CASE EVENT DATE: 20161010
